FAERS Safety Report 17123743 (Version 2)
Quarter: 2019Q4

REPORT INFORMATION
  Report Type: Spontaneous
  Country: JP (occurrence: JP)
  Receive Date: 20191206
  Receipt Date: 20191217
  Transmission Date: 20200122
  Serious: Yes (Other)
  Sender: FDA-Public Use
  Company Number: JP-009507513-1912JPN000724J

PATIENT
  Age: 84 Year
  Sex: Male
  Weight: 52 kg

DRUGS (1)
  1. CUBICIN [Suspect]
     Active Substance: DAPTOMYCIN
     Indication: STAPHYLOCOCCAL INFECTION
     Dosage: 450 MILLIGRAM, QD
     Route: 042

REACTIONS (1)
  - Pneumonia [Recovering/Resolving]
